FAERS Safety Report 8502954-0 (Version None)
Quarter: 2012Q3

REPORT INFORMATION
  Report Type: 
  Country: None (occurrence: None)
  Receive Date: 20120711
  Receipt Date: 20120628
  Transmission Date: 20120928
  Serious: Yes (Other)
  Sender: FDA-Public Use
  Company Number: JP-PFIZER INC-2012132980

PATIENT
  Age: 83 Year
  Sex: Female

DRUGS (2)
  1. AZULFIDINE [Suspect]
     Indication: RHEUMATOID ARTHRITIS
     Dosage: 500MG DAILY
     Route: 048
     Dates: start: 20120507, end: 20120528
  2. CELEBREX [Concomitant]

REACTIONS (1)
  - RHEUMATOID ARTHRITIS [None]
